FAERS Safety Report 16730279 (Version 1)
Quarter: 2019Q3

REPORT INFORMATION
  Report Type: Spontaneous
  Country: US (occurrence: US)
  Receive Date: 20190822
  Receipt Date: 20190822
  Transmission Date: 20191005
  Serious: No
  Sender: FDA-Public Use
  Company Number: US-ASTRAZENECA-2019SF06602

PATIENT
  Sex: Female
  Weight: 79.4 kg

DRUGS (2)
  1. SYMBICORT [Suspect]
     Active Substance: BUDESONIDE\FORMOTEROL FUMARATE DIHYDRATE
     Indication: ASTHMA
     Dosage: 160/4.5 MCG , 1 PUFF DAILY
     Route: 055
     Dates: start: 20190325
  2. LYVOXAL [Concomitant]
     Indication: TOXIC NODULAR GOITRE
     Route: 048

REACTIONS (4)
  - Hordeolum [Unknown]
  - Dysphonia [Unknown]
  - Productive cough [Unknown]
  - Visual impairment [Unknown]
